FAERS Safety Report 24043418 (Version 1)
Quarter: 2024Q3

REPORT INFORMATION
  Report Type: Report from Study
  Country: US (occurrence: US)
  Receive Date: 20240703
  Receipt Date: 20240703
  Transmission Date: 20241016
  Serious: Yes (Hospitalization, Other)
  Sender: TAKEDA
  Company Number: US-TAKEDA-US201916388

PATIENT
  Sex: Female
  Weight: 43.08 kg

DRUGS (30)
  1. TEDUGLUTIDE [Suspect]
     Active Substance: TEDUGLUTIDE
     Indication: Short-bowel syndrome
     Dosage: 2.32 MILLIGRAM, QD
     Route: 058
  2. TEDUGLUTIDE [Suspect]
     Active Substance: TEDUGLUTIDE
     Indication: Short-bowel syndrome
     Dosage: 2.32 MILLIGRAM, QD
     Route: 058
  3. TEDUGLUTIDE [Suspect]
     Active Substance: TEDUGLUTIDE
     Indication: Short-bowel syndrome
     Dosage: 2.32 MILLIGRAM, QD
     Route: 058
  4. TEDUGLUTIDE [Suspect]
     Active Substance: TEDUGLUTIDE
     Indication: Short-bowel syndrome
     Dosage: 2.32 MILLIGRAM, QD
     Route: 058
  5. TEDUGLUTIDE [Suspect]
     Active Substance: TEDUGLUTIDE
     Dosage: 2.32 MILLIGRAM, QD
     Route: 058
  6. TEDUGLUTIDE [Suspect]
     Active Substance: TEDUGLUTIDE
     Dosage: 2.32 MILLIGRAM, QD
     Route: 058
  7. TEDUGLUTIDE [Suspect]
     Active Substance: TEDUGLUTIDE
     Dosage: 2.32 MILLIGRAM, QD
     Route: 058
  8. TEDUGLUTIDE [Suspect]
     Active Substance: TEDUGLUTIDE
     Dosage: 2.32 MILLIGRAM, QD
     Route: 058
  9. SMOFLIPID [Concomitant]
     Active Substance: FISH OIL\MEDIUM-CHAIN TRIGLYCERIDES\OLIVE OIL\SOYBEAN OIL
     Dosage: UNK
     Route: 065
  10. MIRTAZAPINE [Concomitant]
     Active Substance: MIRTAZAPINE
     Dosage: UNK
     Route: 065
  11. TPN [Concomitant]
     Active Substance: AMINO ACIDS\DEXTROSE\ELECTROLYTES NOS\SOYBEAN OIL
     Dosage: UNK
     Route: 065
  12. TYLENOL EXTRA STRENGTH [Concomitant]
     Active Substance: ACETAMINOPHEN
     Dosage: UNK
     Route: 065
  13. HYDROCORTISONE [Concomitant]
     Active Substance: HYDROCORTISONE\HYDROCORTISONE ACETATE
     Dosage: UNK
     Route: 065
  14. LYRICA [Concomitant]
     Active Substance: PREGABALIN
     Dosage: 50 MILLIGRAM
     Route: 065
  15. LOSARTAN POTASSIUM [Concomitant]
     Active Substance: LOSARTAN POTASSIUM
     Dosage: UNK
     Route: 065
  16. NYSTOP [Concomitant]
     Active Substance: NYSTATIN
     Dosage: UNK
     Route: 065
  17. VIVELLE-DOT [Concomitant]
     Active Substance: ESTRADIOL
     Dosage: UNK
     Route: 065
  18. PROMETHAZINE HYDROCHLORIDE [Concomitant]
     Active Substance: PROMETHAZINE HYDROCHLORIDE
     Dosage: UNK
     Route: 065
  19. IMODIUM A-D [Concomitant]
     Active Substance: LOPERAMIDE HYDROCHLORIDE
     Dosage: UNK
     Route: 065
  20. IRON [Concomitant]
     Active Substance: IRON
     Dosage: UNK
     Route: 065
  21. VITAMIN D3 [Concomitant]
     Active Substance: CHOLECALCIFEROL
     Dosage: UNK
     Route: 065
  22. VITAMIN B12 [Concomitant]
     Active Substance: CYANOCOBALAMIN
     Dosage: UNK
     Route: 065
  23. MAGNESIUM [Concomitant]
     Active Substance: MAGNESIUM
     Dosage: UNK
  24. CALCIUM CITRATE [Concomitant]
     Active Substance: CALCIUM CITRATE
     Dosage: UNK
     Route: 065
  25. XANAX [Concomitant]
     Active Substance: ALPRAZOLAM
     Dosage: UNK
     Route: 065
  26. ZOFRAN [Concomitant]
     Active Substance: ONDANSETRON HYDROCHLORIDE
     Dosage: UNK
     Route: 065
  27. KLOR-CON M20 [Concomitant]
     Active Substance: POTASSIUM CHLORIDE
     Dosage: UNK
     Route: 065
  28. TREXALL [Concomitant]
     Active Substance: METHOTREXATE SODIUM
     Dosage: UNK
     Route: 065
  29. DAPTOMYCIN [Concomitant]
     Active Substance: DAPTOMYCIN
     Dosage: UNK
     Route: 065
  30. SALINE [Concomitant]
     Active Substance: SODIUM CHLORIDE
     Dosage: UNK
     Route: 065

REACTIONS (11)
  - Vascular device infection [Unknown]
  - Weight decreased [Unknown]
  - Memory impairment [Unknown]
  - Hepatic enzyme increased [Unknown]
  - Blood triglycerides increased [Unknown]
  - Stoma complication [Unknown]
  - Injection site pain [Unknown]
  - Injection site erythema [Unknown]
  - Dysphonia [Unknown]
  - Multiple allergies [Unknown]
  - Liver function test increased [Unknown]
